FAERS Safety Report 6865294-1 (Version None)
Quarter: 2010Q3

REPORT INFORMATION
  Report Type: 
  Country: None (occurrence: None)
  Receive Date: 20100721
  Receipt Date: 20080415
  Transmission Date: 20110219
  Serious: No
  Sender: FDA-Public Use
  Company Number: US-PFIZER INC-2008035011

PATIENT
  Sex: Male
  Weight: 68.2 kg

DRUGS (2)
  1. CHANTIX [Suspect]
     Indication: SMOKING CESSATION THERAPY
     Dates: start: 20080401, end: 20080401
  2. ZANTAC [Concomitant]

REACTIONS (2)
  - HYPERSOMNIA [None]
  - URINE ALCOHOL TEST POSITIVE [None]
